FAERS Safety Report 10171017 (Version 1)
Quarter: 2014Q2

REPORT INFORMATION
  Report Type: Spontaneous
  Country: PL (occurrence: PL)
  Receive Date: 20140514
  Receipt Date: 20140514
  Transmission Date: 20141212
  Serious: Yes (Other)
  Sender: FDA-Public Use
  Company Number: PL-ASTELLAS-2014EU004235

PATIENT
  Age: 54 Year
  Sex: Female

DRUGS (3)
  1. TACROLIMUS [Suspect]
     Indication: IMMUNOSUPPRESSION
     Dosage: UNK, UNKNOWN FREQ.
     Route: 065
  2. MYCOPHENOLATE MOFETIL [Concomitant]
     Indication: IMMUNOSUPPRESSION
     Dosage: UNK UNK, UNKNOWN FREQ.
     Route: 065
  3. CORTICOSTEROID NOS [Concomitant]
     Indication: IMMUNOSUPPRESSION
     Dosage: UNK UNK, UNKNOWN FREQ.
     Route: 065

REACTIONS (9)
  - Complications of transplanted kidney [Unknown]
  - Escherichia urinary tract infection [Unknown]
  - Renal impairment [Unknown]
  - Kidney infection [Unknown]
  - Urinary tract infection pseudomonal [Unknown]
  - Staphylococcal sepsis [Unknown]
  - Pulmonary embolism [Unknown]
  - Embolism [Unknown]
  - Endometrial stromal sarcoma [Unknown]
